FAERS Safety Report 7444775-6 (Version None)
Quarter: 2011Q2

REPORT INFORMATION
  Report Type: 
  Country: None (occurrence: None)
  Receive Date: 20110426
  Receipt Date: 20110426
  Transmission Date: 20111010
  Serious: Yes (Other)
  Sender: FDA-Public Use
  Company Number: None

PATIENT
  Age: 41 Year
  Sex: Female
  Weight: 52.1637 kg

DRUGS (1)
  1. CIPRO [Suspect]
     Indication: URINARY TRACT INFECTION
     Dosage: TWO PILLS OF 500 MG EACH DAILY PO
     Route: 048
     Dates: start: 20101215, end: 20101220

REACTIONS (4)
  - DIPLOPIA [None]
  - DIZZINESS [None]
  - EYE DISORDER [None]
  - THROMBOSIS [None]
